FAERS Safety Report 23192959 (Version 1)
Quarter: 2023Q4

REPORT INFORMATION
  Report Type: Spontaneous
  Country: FR (occurrence: FR)
  Receive Date: 20231116
  Receipt Date: 20231116
  Transmission Date: 20240110
  Serious: Yes (Hospitalization)
  Sender: FDA-Public Use
  Company Number: FR-ABBVIE-5494679

PATIENT

DRUGS (1)
  1. BOTOX [Suspect]
     Active Substance: ONABOTULINUMTOXINA
     Indication: Head titubation
     Dosage: TIME INTERVAL: AS NECESSARY: DAY 0
     Route: 030

REACTIONS (4)
  - Aphasia [Unknown]
  - Asthenia [Unknown]
  - Off label use [Unknown]
  - Dizziness [Unknown]
